FAERS Safety Report 15644459 (Version 3)
Quarter: 2019Q1

REPORT INFORMATION
  Report Type: Spontaneous
  Country: US (occurrence: US)
  Receive Date: 20181121
  Receipt Date: 20190215
  Transmission Date: 20190417
  Serious: Yes (Life-Threatening, Other)
  Sender: FDA-Public Use
  Company Number: US-ASCEND THERAPEUTICS-2059158

PATIENT
  Age: 36 Year
  Sex: Female

DRUGS (3)
  1. PROGESTERONE. [Suspect]
     Active Substance: PROGESTERONE
     Route: 030
  2. ESTROGEL [Suspect]
     Active Substance: ESTRADIOL
     Indication: HORMONE REPLACEMENT THERAPY
     Route: 048
  3. LEUPROLIDE ACETATE. [Concomitant]
     Active Substance: LEUPROLIDE ACETATE
     Route: 030

REACTIONS (5)
  - Xanthoma [Recovered/Resolved]
  - Condition aggravated [Recovered/Resolved]
  - Hypertriglyceridaemia [Recovered/Resolved]
  - Exposure during pregnancy [Unknown]
  - Abortion induced [Unknown]
